FAERS Safety Report 23148830 (Version 1)
Quarter: 2023Q4

REPORT INFORMATION
  Report Type: Spontaneous
  Country: US (occurrence: US)
  Receive Date: 20231106
  Receipt Date: 20231106
  Transmission Date: 20240110
  Serious: Yes (Hospitalization)
  Sender: FDA-Public Use
  Company Number: US-MYLANLABS-2023M1116375

PATIENT
  Age: 70 Year
  Sex: Male

DRUGS (4)
  1. TACROLIMUS [Suspect]
     Active Substance: TACROLIMUS
     Indication: Prophylaxis
     Dosage: STARTED ON DAY 1 WITH A GOAL LEVEL OF 10 NG/ML; MAINTENANCE IMMUNOSUPRESSION
     Route: 065
  2. TACROLIMUS [Suspect]
     Active Substance: TACROLIMUS
     Indication: Graft versus host disease
     Dosage: LEVEL WAS MAINTAINED AT 10 TO 14 NG/ML
     Route: 065
  3. BASILIXIMAB [Suspect]
     Active Substance: BASILIXIMAB
     Indication: Prophylaxis
     Dosage: INDUCTION IMMUNOSUPPRESSIVE THERAPY; ON POSTTRANSPLANT DAYS 1 AND DAY 4
     Route: 065
  4. BASILIXIMAB [Suspect]
     Active Substance: BASILIXIMAB
     Indication: Graft versus host disease

REACTIONS (1)
  - Drug ineffective [Unknown]
